FAERS Safety Report 9182039 (Version 1)
Quarter: 2012Q4

REPORT INFORMATION
  Report Type: 
  Country: IL (occurrence: IL)
  Receive Date: 20121030
  Receipt Date: 20121030
  Transmission Date: 20130627
  Serious: Yes (Hospitalization, Other)
  Sender: FDA-Public Use
  Company Number: PHHY2012IL096211

PATIENT
  Age: 73 Year
  Sex: Male

DRUGS (1)
  1. EXFORGE [Suspect]
     Indication: HYPERTENSION
     Dosage: 1 DF, (160 mg vals and 10 mg amlo)
     Route: 048

REACTIONS (4)
  - Hypertension [Recovered/Resolved]
  - Basal ganglia infarction [Unknown]
  - Delusion [Recovered/Resolved]
  - Nightmare [Recovered/Resolved]
